FAERS Safety Report 5255934-5 (Version None)
Quarter: 2007Q1

REPORT INFORMATION
  Report Type: 
  Country: None (occurrence: None)
  Receive Date: 20061204
  Receipt Date: 20060828
  Transmission Date: 20070707
  Serious: No
  Sender: FDA-Public Use
  Company Number: 2006-BP-10004BP

PATIENT
  Age: 73 Year
  Sex: Female

DRUGS (2)
  1. SPIRIVA [Suspect]
     Dosage: 18 MCG (18 MCG, 1 IN 1 D), IH
     Route: 055
     Dates: start: 20060820, end: 20060826
  2. ADVAIR (SERETIDE /01420901/) [Concomitant]

REACTIONS (2)
  - CHEST DISCOMFORT [None]
  - DYSPHONIA [None]
